FAERS Safety Report 11757088 (Version 1)
Quarter: 2015Q4

REPORT INFORMATION
  Report Type: Spontaneous
  Country: US (occurrence: None)
  Receive Date: 20151119
  Receipt Date: 20151119
  Transmission Date: 20160304
  Serious: Yes (Death)
  Sender: FDA-Public Use
  Company Number: None

PATIENT
  Age: 63 Year
  Sex: Male

DRUGS (19)
  1. ASPIRIN 81MG [Concomitant]
     Active Substance: ASPIRIN
  2. LORATADINE. [Concomitant]
     Active Substance: LORATADINE
  3. METOPROLOL [Concomitant]
     Active Substance: METOPROLOL
  4. ADVAIR HFA [Concomitant]
     Active Substance: FLUTICASONE PROPIONATE\SALMETEROL XINAFOATE
  5. POLYCARBOPHIL [Concomitant]
     Active Substance: POLYCARBOPHIL
  6. OMEPRAZOLE. [Concomitant]
     Active Substance: OMEPRAZOLE
  7. DIGOXIN. [Concomitant]
     Active Substance: DIGOXIN
  8. GEMFIBROZIL. [Concomitant]
     Active Substance: GEMFIBROZIL
  9. NOVOLOG [Concomitant]
     Active Substance: INSULIN ASPART
  10. THIORIDAZINE [Suspect]
     Active Substance: THIORIDAZINE
     Indication: SCHIZOPHRENIA
     Route: 048
  11. LYRICA [Concomitant]
     Active Substance: PREGABALIN
  12. LISINOPRIL. [Concomitant]
     Active Substance: LISINOPRIL
  13. MIRTAZAPINE. [Concomitant]
     Active Substance: MIRTAZAPINE
  14. QUETIAPINE [Concomitant]
     Active Substance: QUETIAPINE
  15. WARFARIN [Concomitant]
     Active Substance: WARFARIN
  16. FUROSEMIDE. [Concomitant]
     Active Substance: FUROSEMIDE
  17. LORAZEPAM. [Concomitant]
     Active Substance: LORAZEPAM
  18. ALBUTEROL. [Concomitant]
     Active Substance: ALBUTEROL
  19. SPIRIVA [Concomitant]
     Active Substance: TIOTROPIUM BROMIDE MONOHYDRATE

REACTIONS (4)
  - Cardiac arrest [None]
  - Ventricular tachycardia [None]
  - Pulseless electrical activity [None]
  - Unresponsive to stimuli [None]

NARRATIVE: CASE EVENT DATE: 20150528
